FAERS Safety Report 25628210 (Version 1)
Quarter: 2025Q3

REPORT INFORMATION
  Report Type: Spontaneous
  Country: US (occurrence: US)
  Receive Date: 20250731
  Receipt Date: 20250731
  Transmission Date: 20251020
  Serious: Yes (Hospitalization)
  Sender: GRIFOLS
  Company Number: US-IGSA-BIG0036737

PATIENT
  Age: 12 Year
  Sex: Female

DRUGS (1)
  1. GAMUNEX-C [Suspect]
     Active Substance: HUMAN IMMUNOGLOBULIN G
     Indication: Chronic inflammatory demyelinating polyradiculoneuropathy
     Dosage: 45 GRAM, Q.3WK.
     Route: 042
     Dates: start: 20250519

REACTIONS (4)
  - Headache [Unknown]
  - Photophobia [Unknown]
  - Migraine [Unknown]
  - Neck pain [Unknown]

NARRATIVE: CASE EVENT DATE: 20250719
